FAERS Safety Report 19206202 (Version 1)
Quarter: 2021Q2

REPORT INFORMATION
  Report Type: Spontaneous
  Country: FR (occurrence: FR)
  Receive Date: 20210503
  Receipt Date: 20210503
  Transmission Date: 20210717
  Serious: Yes (Other)
  Sender: FDA-Public Use
  Company Number: FR-PFIZER INC-2021452926

PATIENT
  Age: 20 Year
  Sex: Female

DRUGS (4)
  1. PRAZEPAM [Suspect]
     Active Substance: PRAZEPAM
     Dosage: UNK
  2. ECSTASY [Suspect]
     Active Substance: MIDOMAFETAMINE
     Dosage: UNK
  3. LYRICA [Suspect]
     Active Substance: PREGABALIN
     Dosage: UNK
  4. COCAINE [Suspect]
     Active Substance: COCAINE
     Dosage: UNK

REACTIONS (2)
  - Drug abuse [Unknown]
  - Hallucination, auditory [Recovered/Resolved]

NARRATIVE: CASE EVENT DATE: 20210404
